FAERS Safety Report 9511514 (Version 3)
Quarter: 2013Q4

REPORT INFORMATION
  Report Type: Report from Study
  Country: JP (occurrence: JP)
  Receive Date: 20130910
  Receipt Date: 20131008
  Transmission Date: 20140711
  Serious: Yes (Hospitalization)
  Sender: FDA-Public Use
  Company Number: JP-FRI-1000048500

PATIENT
  Age: 52 Year
  Sex: Female
  Weight: 48 kg

DRUGS (3)
  1. BLOPRESS [Concomitant]
     Indication: HYPERTENSION
     Dosage: 8 MG
     Route: 048
     Dates: start: 20130314
  2. LIVALO [Concomitant]
     Indication: DYSLIPIDAEMIA
     Dosage: 2 MG
     Route: 048
     Dates: start: 20121024
  3. LINACLOTIDE [Suspect]
     Indication: IRRITABLE BOWEL SYNDROME
     Dosage: 0.0625 MG (3 DF, UID/QD)
     Route: 048
     Dates: start: 20130625, end: 20130825

REACTIONS (1)
  - Asthma [Recovered/Resolved]
